FAERS Safety Report 19942705 (Version 1)
Quarter: 2021Q4

REPORT INFORMATION
  Report Type: Spontaneous
  Country: FR (occurrence: FR)
  Receive Date: 20211012
  Receipt Date: 20211012
  Transmission Date: 20220303
  Serious: Yes (Hospitalization)
  Sender: FDA-Public Use
  Company Number: FR-AFSSAPS-CN20212986

PATIENT
  Age: 30 Year
  Sex: Female

DRUGS (5)
  1. ACETAMINOPHEN [Suspect]
     Active Substance: ACETAMINOPHEN
     Indication: Intentional overdose
     Dosage: 3 GRAM, IMV
     Route: 048
     Dates: start: 20210504, end: 20210504
  2. VENLAFAXINE [Suspect]
     Active Substance: VENLAFAXINE HYDROCHLORIDE
     Indication: Intentional overdose
     Dosage: 750 MILLIGRAM, IMV
     Route: 048
     Dates: start: 20210504, end: 20210504
  3. MIRTAZAPINE [Suspect]
     Active Substance: MIRTAZAPINE
     Indication: Intentional overdose
     Dosage: 300 MILLIGRAM, IMV
     Route: 048
     Dates: start: 20210504, end: 20210504
  4. PRAZEPAM [Suspect]
     Active Substance: PRAZEPAM
     Indication: Product used for unknown indication
     Dosage: 50 DOSAGE FORM, IMV
     Route: 048
     Dates: start: 20210504, end: 20210504
  5. ESOMEPRAZOLE ALMUS 20 mg, comprime gastro-resistant [Concomitant]
     Indication: Gastrooesophageal reflux disease
     Dosage: 20 MILLIGRAM, IMV
     Route: 048

REACTIONS (3)
  - Overdose [Recovered/Resolved]
  - Abdominal pain upper [Recovered/Resolved]
  - Suicide attempt [Unknown]

NARRATIVE: CASE EVENT DATE: 20210504
